FAERS Safety Report 16271867 (Version 2)
Quarter: 2019Q2

REPORT INFORMATION
  Report Type: Spontaneous
  Country: CN (occurrence: CN)
  Receive Date: 20190503
  Receipt Date: 20190510
  Transmission Date: 20190711
  Serious: Yes (Hospitalization, Other)
  Sender: FDA-Public Use
  Company Number: CN-GLAXOSMITHKLINE-B0627979A

PATIENT
  Age: 4 Year
  Sex: Female

DRUGS (2)
  1. LAMOTRIGINE. [Suspect]
     Active Substance: LAMOTRIGINE
     Indication: EPILEPSY
     Route: 048
  2. VALPROATE [Suspect]
     Active Substance: VALPROIC ACID
     Indication: EPILEPSY
     Route: 065

REACTIONS (36)
  - Drug reaction with eosinophilia and systemic symptoms [Recovered/Resolved]
  - Hyperpyrexia [Unknown]
  - Pruritus [Unknown]
  - Hepatomegaly [Unknown]
  - Renal impairment [Unknown]
  - Tachypnoea [Unknown]
  - Face oedema [Unknown]
  - Erythema [Unknown]
  - Cough [Unknown]
  - Drug hypersensitivity [Recovered/Resolved]
  - Seizure [Unknown]
  - Hyperaemia [Unknown]
  - Hydrothorax [Unknown]
  - Platelet count decreased [Unknown]
  - Blood albumin abnormal [Unknown]
  - Rash maculo-papular [Recovered/Resolved]
  - Haemoglobin decreased [Unknown]
  - Effusion [Unknown]
  - Eosinophilia [Unknown]
  - Tonsillar disorder [Unknown]
  - Pleural effusion [Unknown]
  - White blood cell count increased [Unknown]
  - Bacterial toxaemia [Unknown]
  - Joint dislocation [Unknown]
  - Malaise [Unknown]
  - Shock [Unknown]
  - Liver function test abnormal [Unknown]
  - Portal vein dilatation [Unknown]
  - Rash [Recovering/Resolving]
  - Splenomegaly [Unknown]
  - Rash papular [Unknown]
  - Hypoproteinaemia [Unknown]
  - Pyrexia [Unknown]
  - Lymphadenopathy [Unknown]
  - Coagulation test abnormal [Unknown]
  - Skin mass [Unknown]
